FAERS Safety Report 11159575 (Version 3)
Quarter: 2015Q3

REPORT INFORMATION
  Report Type: Report from Study
  Country: US (occurrence: US)
  Receive Date: 20150603
  Receipt Date: 20150713
  Transmission Date: 20151125
  Serious: Yes (Other)
  Sender: FDA-Public Use
  Company Number: US-SA-2014SA087021

PATIENT
  Age: 45 Year
  Sex: Female

DRUGS (1)
  1. AUBAGIO [Suspect]
     Active Substance: TERIFLUNOMIDE
     Indication: MULTIPLE SCLEROSIS
     Route: 048
     Dates: start: 20140613, end: 20150626

REACTIONS (7)
  - Fatigue [Recovering/Resolving]
  - Menstruation irregular [Unknown]
  - Paraesthesia [Not Recovered/Not Resolved]
  - Paraesthesia [Unknown]
  - Feeling drunk [Unknown]
  - Hypoaesthesia [Unknown]
  - Urinary tract infection [Unknown]
